FAERS Safety Report 5708835-X (Version None)
Quarter: 2008Q2

REPORT INFORMATION
  Report Type: 
  Country: None (occurrence: None)
  Receive Date: 20080416
  Receipt Date: 20080403
  Transmission Date: 20081010
  Serious: Yes (Death)
  Sender: FDA-Public Use
  Company Number: 2007BI024296

PATIENT
  Age: 50 Year
  Sex: Female
  Weight: 74.8435 kg

DRUGS (1)
  1. AVONEX [Suspect]
     Indication: MULTIPLE SCLEROSIS
     Dosage: 30 UG;QW; IM
     Route: 030
     Dates: start: 20070510

REACTIONS (2)
  - ACCIDENT [None]
  - DROWNING [None]
